FAERS Safety Report 5557645-5 (Version None)
Quarter: 2007Q4

REPORT INFORMATION
  Report Type: 
  Country: None (occurrence: None)
  Receive Date: 20071214
  Receipt Date: 20071206
  Transmission Date: 20080405
  Serious: Yes (Hospitalization)
  Sender: FDA-Public Use
  Company Number: B0499624A

PATIENT
  Age: 46 Year
  Sex: Female
  Weight: 157 kg

DRUGS (3)
  1. ARIXTRA [Suspect]
     Indication: DEEP VEIN THROMBOSIS
     Dosage: 7.5MG PER DAY
     Route: 058
     Dates: start: 20071006, end: 20071011
  2. PAROXETINE HCL [Suspect]
     Dosage: 20MG PER DAY
     Route: 048
     Dates: start: 20070201, end: 20071012
  3. PREVISCAN [Suspect]
     Route: 048
     Dates: start: 20070916

REACTIONS (4)
  - DEEP VEIN THROMBOSIS [None]
  - ECCHYMOSIS [None]
  - PAIN [None]
  - PYELONEPHRITIS [None]
